FAERS Safety Report 8110698-2 (Version None)
Quarter: 2012Q1

REPORT INFORMATION
  Report Type: 
  Country: None (occurrence: None)
  Receive Date: 20120203
  Receipt Date: 20120126
  Transmission Date: 20120608
  Serious: Yes (Hospitalization)
  Sender: FDA-Public Use
  Company Number: DE-JNJFOC-20120111525

PATIENT
  Age: 66 Year
  Sex: Male

DRUGS (6)
  1. METHOTREXATE [Suspect]
     Indication: RHEUMATOID ARTHRITIS
     Dates: start: 20100901
  2. ACTONEL [Concomitant]
     Dates: start: 20100201
  3. SIMPONI [Suspect]
     Indication: RHEUMATOID ARTHRITIS
     Route: 058
     Dates: start: 20110401
  4. BISOPROLOL [Concomitant]
  5. METHOTREXATE [Suspect]
     Dates: start: 20061101, end: 20100801
  6. PREDNISOLONE [Concomitant]
     Dates: start: 20110601

REACTIONS (1)
  - BRONCHITIS [None]
